FAERS Safety Report 15726409 (Version 3)
Quarter: 2021Q2

REPORT INFORMATION
  Report Type: Spontaneous
  Country: FR (occurrence: FR)
  Receive Date: 20181217
  Receipt Date: 20210521
  Transmission Date: 20210716
  Serious: Yes (Other)
  Sender: FDA-Public Use
  Company Number: FR-AUROBINDO-AUR-APL-2018-059896

PATIENT
  Age: 7 Decade
  Sex: Female

DRUGS (7)
  1. VALACICLOVIR [Suspect]
     Active Substance: VALACYCLOVIR HYDROCHLORIDE
     Indication: POEMS SYNDROME
     Dosage: UNK
     Route: 048
     Dates: start: 201703
  2. LENALIDOMIDE [Suspect]
     Active Substance: LENALIDOMIDE
     Indication: POEMS SYNDROME
     Dosage: UNK
     Route: 065
     Dates: start: 201703
  3. PREGABALIN. [Concomitant]
     Active Substance: PREGABALIN
     Indication: POEMS SYNDROME
     Dosage: UNK
     Route: 065
  4. ESOMEPRAZOLE. [Suspect]
     Active Substance: ESOMEPRAZOLE MAGNESIUM
     Indication: POEMS SYNDROME
     Dosage: UNK
     Route: 065
     Dates: start: 201703
  5. AMITRIPTYLINE [Suspect]
     Active Substance: AMITRIPTYLINE
     Indication: POEMS SYNDROME
     Dosage: UNK
     Route: 065
     Dates: start: 201703
  6. SULFAMETHOXAZOLE;TRIMETHOPRIM [Suspect]
     Active Substance: SULFAMETHOXAZOLE\TRIMETHOPRIM
     Indication: POEMS SYNDROME
     Dosage: UNK
     Route: 065
     Dates: start: 201703
  7. DARATUMUMAB [Concomitant]
     Active Substance: DARATUMUMAB
     Indication: POEMS SYNDROME
     Dosage: UNK
     Route: 065

REACTIONS (2)
  - Drug reaction with eosinophilia and systemic symptoms [Recovering/Resolving]
  - Hepatic function abnormal [Unknown]

NARRATIVE: CASE EVENT DATE: 201704
